FAERS Safety Report 11870137 (Version 2)
Quarter: 2016Q1

REPORT INFORMATION
  Report Type: Spontaneous
  Country: US (occurrence: US)
  Receive Date: 20151228
  Receipt Date: 20160104
  Transmission Date: 20160526
  Serious: No
  Sender: FDA-Public Use
  Company Number: US-BAYER-2015-491307

PATIENT
  Age: 89 Year
  Sex: Male
  Weight: 75.28 kg

DRUGS (2)
  1. MIRALAX [Suspect]
     Active Substance: POLYETHYLENE GLYCOL 3350
     Indication: CONSTIPATION
     Dosage: 2 DF, BID
     Route: 048
     Dates: end: 20151213
  2. BAYER LOW DOSE [Suspect]
     Active Substance: ASPIRIN
     Indication: BLOOD CHOLESTEROL
     Dosage: 1 DF, QD
     Route: 048

REACTIONS (10)
  - Product use issue [None]
  - Adverse event [None]
  - Drug hypersensitivity [None]
  - Bowel movement irregularity [None]
  - Off label use [None]
  - Dizziness [Not Recovered/Not Resolved]
  - Diarrhoea [None]
  - Adverse drug reaction [None]
  - Vertigo [None]
  - Irritable bowel syndrome [None]
